FAERS Safety Report 8247442-4 (Version None)
Quarter: 2012Q1

REPORT INFORMATION
  Report Type: 
  Country: None (occurrence: None)
  Receive Date: 20120327
  Receipt Date: 20120313
  Transmission Date: 20120608
  Serious: Yes (Hospitalization)
  Sender: FDA-Public Use
  Company Number: DSJ-2012-05040

PATIENT
  Age: 76 Year
  Sex: Female

DRUGS (3)
  1. ACETYLSALICYLIC ACID SRT [Concomitant]
  2. BENICAR [Suspect]
     Indication: HYPERTENSION
     Dosage: 20 MG (20 MG, 1 IN 1 D),PER ORAL
     Route: 048
     Dates: end: 20110901
  3. FORMOTEROL/BUDESONIDE (BUDESONIDE, FORMOTEROL)(BUDESONIDE, FORMOTEROL) [Concomitant]

REACTIONS (4)
  - ARRHYTHMIA [None]
  - DRUG INEFFECTIVE [None]
  - ASTHMA [None]
  - CONDITION AGGRAVATED [None]
